FAERS Safety Report 25326974 (Version 1)
Quarter: 2025Q2

REPORT INFORMATION
  Report Type: Spontaneous
  Country: ES (occurrence: ES)
  Receive Date: 20250517
  Receipt Date: 20250517
  Transmission Date: 20250716
  Serious: Yes (Death, Hospitalization)
  Sender: ACCORD
  Company Number: None

PATIENT
  Age: 64 Year
  Sex: Male

DRUGS (3)
  1. CARBOPLATIN [Suspect]
     Active Substance: CARBOPLATIN
     Indication: Lung neoplasm malignant
     Dates: start: 20240603, end: 20240701
  2. PEMETREXED [Suspect]
     Active Substance: PEMETREXED
     Indication: Lung neoplasm malignant
     Dates: start: 20240603, end: 20240701
  3. PEMBROLIZUMAB [Suspect]
     Active Substance: PEMBROLIZUMAB
     Indication: Lung neoplasm malignant
     Dates: start: 20240603, end: 20240701

REACTIONS (1)
  - Myeloproliferative neoplasm [Fatal]

NARRATIVE: CASE EVENT DATE: 20240712
